FAERS Safety Report 6715430-2 (Version None)
Quarter: 2010Q2

REPORT INFORMATION
  Report Type: 
  Country: None (occurrence: None)
  Receive Date: 20100507
  Receipt Date: 20100428
  Transmission Date: 20101027
  Serious: Yes (Life-Threatening, Other)
  Sender: FDA-Public Use
  Company Number: GB-JNJFOC-20100407869

PATIENT
  Age: 62 Year
  Sex: Female
  Weight: 62.5 kg

DRUGS (5)
  1. REMICADE [Suspect]
     Indication: RHEUMATOID ARTHRITIS
     Route: 042
  2. METHOTREXATE [Suspect]
     Indication: RHEUMATOID ARTHRITIS
     Route: 048
  3. ALENDRONATE SODIUM [Concomitant]
  4. ETODOLAC [Concomitant]
  5. LANSOPRAZOLE [Concomitant]

REACTIONS (1)
  - TONSIL CANCER [None]
